FAERS Safety Report 4566486-7 (Version None)
Quarter: 2005Q1

REPORT INFORMATION
  Report Type: 
  Country: None (occurrence: None)
  Receive Date: 20050128
  Receipt Date: 20050121
  Transmission Date: 20050727
  Serious: Yes (Hospitalization, Other)
  Sender: FDA-Public Use
  Company Number: KII-2005-0014807

PATIENT
  Age: 82 Year
  Sex: Female

DRUGS (2)
  1. OXYCONTIN [Suspect]
     Dosage: ORAL
     Route: 048
  2. SULFAMETHOXAZOLE [Suspect]
     Dosage: ORAL
     Route: 048

REACTIONS (11)
  - BLOOD CHLORIDE DECREASED [None]
  - BLOOD SODIUM DECREASED [None]
  - BREAST INJURY [None]
  - BREAST PAIN [None]
  - DIZZINESS [None]
  - FALL [None]
  - OVERDOSE [None]
  - PAIN [None]
  - RESPIRATORY RATE INCREASED [None]
  - RIB FRACTURE [None]
  - SYNCOPE [None]
